FAERS Safety Report 5063515-1 (Version None)
Quarter: 2006Q3

REPORT INFORMATION
  Report Type: 
  Country: None (occurrence: None)
  Receive Date: 20060727
  Receipt Date: 20060716
  Transmission Date: 20061208
  Serious: Yes (Other)
  Sender: FDA-Public Use
  Company Number: US-JNJFOC-20060703954

PATIENT
  Age: 29 Year
  Sex: Male

DRUGS (5)
  1. TYLENOL (CAPLET) [Suspect]
     Route: 048
  2. TYLENOL (CAPLET) [Suspect]
     Indication: HEADACHE
     Route: 048
  3. EXTRA STRENGTH TYLENOL [Suspect]
     Route: 048
  4. EXTRA STRENGTH TYLENOL [Suspect]
     Indication: HEADACHE
     Route: 048
  5. TEGRETOL [Concomitant]
     Indication: CONVULSION

REACTIONS (1)
  - CONVULSION [None]
